FAERS Safety Report 5933689-6 (Version None)
Quarter: 2008Q4

REPORT INFORMATION
  Report Type: 
  Country: None (occurrence: None)
  Receive Date: 20081029
  Receipt Date: 20081021
  Transmission Date: 20090506
  Serious: Yes (Hospitalization)
  Sender: FDA-Public Use
  Company Number: KR-SANOFI-SYNTHELABO-F01200701164

PATIENT
  Sex: Male
  Weight: 67.5 kg

DRUGS (8)
  1. LEUCOVORIN CALCIUM [Suspect]
     Dosage: D1-D2
     Route: 042
     Dates: start: 20070810, end: 20070812
  2. SUCRALFATE [Concomitant]
     Route: 048
     Dates: start: 20070829
  3. PANTOPRAZOLE SODIUM [Concomitant]
     Route: 048
     Dates: start: 20070825
  4. ELOXATIN [Suspect]
     Indication: HEPATIC NEOPLASM MALIGNANT
     Route: 042
     Dates: start: 20070810, end: 20070810
  5. DOLASETRON [Concomitant]
     Route: 042
     Dates: start: 20070810, end: 20070812
  6. THIAMINE HCL [Concomitant]
     Route: 048
     Dates: start: 20070903
  7. FLUOROURACIL [Suspect]
     Dosage: 300 MG/M2=500 MG BOLUS THEN 500 MG/M2=865 MG CONTINUOUS INFUSION D1-2
     Route: 042
     Dates: start: 20070810, end: 20070812
  8. LAMIVUDINE [Concomitant]
     Route: 048
     Dates: start: 20070612

REACTIONS (4)
  - DUODENAL ULCER [None]
  - HAEMATEMESIS [None]
  - MELAENA [None]
  - UPPER GASTROINTESTINAL HAEMORRHAGE [None]
